FAERS Safety Report 16026882 (Version 4)
Quarter: 2019Q2

REPORT INFORMATION
  Report Type: Spontaneous
  Country: IL (occurrence: IL)
  Receive Date: 20190303
  Receipt Date: 20190408
  Transmission Date: 20190711
  Serious: Yes (Hospitalization, Other)
  Sender: FDA-Public Use
  Company Number: PHHY2019IL045625

PATIENT
  Age: 43 Year
  Sex: Male

DRUGS (2)
  1. SANDIMMUN [Suspect]
     Active Substance: CYCLOSPORINE
     Indication: BONE MARROW TRANSPLANT
     Dosage: UNK
     Route: 065
     Dates: start: 201603
  2. SANDIMMUN [Suspect]
     Active Substance: CYCLOSPORINE
     Dosage: 250 MG, BID (150MG+100MG (250MG DAILY)
     Route: 065

REACTIONS (4)
  - Graft versus host disease [Unknown]
  - Feeling abnormal [Recovered/Resolved]
  - Femur fracture [Unknown]
  - Product taste abnormal [Recovered/Resolved]
